FAERS Safety Report 9462828 (Version 1)
Quarter: 2013Q3

REPORT INFORMATION
  Report Type: Report from Study
  Country: BR (occurrence: BR)
  Receive Date: 20130816
  Receipt Date: 20130816
  Transmission Date: 20140515
  Serious: Yes (Other)
  Sender: FDA-Public Use
  Company Number: BR-BAXTER-2013BAX032657

PATIENT
  Sex: 0

DRUGS (3)
  1. GENUXAL [Suspect]
     Indication: NEOPLASM RECURRENCE
     Dosage: 2.5 G/M2, INTERVAL OF 21 DAYS
  2. HOLOXANE [Suspect]
     Indication: NEOPLASM RECURRENCE
     Dosage: INTERVAL OF 21 DAYS
  3. MESNA [Suspect]
     Indication: NEOPLASM RECURRENCE
     Dosage: INTERVAL OF 21 DAYS

REACTIONS (1)
  - Neoplasm progression [Unknown]
